FAERS Safety Report 9691851 (Version 1)
Quarter: 2013Q4

REPORT INFORMATION
  Report Type: Spontaneous
  Country: AT (occurrence: AT)
  Receive Date: 20131116
  Receipt Date: 20131116
  Transmission Date: 20140711
  Serious: Yes (Hospitalization, Other)
  Sender: FDA-Public Use
  Company Number: AT-009507513-1311AUT005952

PATIENT
  Sex: Female

DRUGS (1)
  1. IMPLANON NXT [Suspect]
     Route: 059

REACTIONS (2)
  - Gastric disorder [Unknown]
  - Gastric bypass [Unknown]
